FAERS Safety Report 11992944 (Version 1)
Quarter: 2016Q1

REPORT INFORMATION
  Report Type: Spontaneous
  Country: US (occurrence: US)
  Receive Date: 20160203
  Receipt Date: 20160203
  Transmission Date: 20160526
  Serious: No
  Sender: FDA-Public Use
  Company Number: US-UCBSA-2015016134

PATIENT
  Sex: Male

DRUGS (5)
  1. LEVETIRACETAM. [Suspect]
     Active Substance: LEVETIRACETAM
     Indication: EPILEPSY
     Dosage: UNKNOWN DOSE
  2. FOSPHENYTOIN [Concomitant]
     Active Substance: FOSPHENYTOIN\FOSPHENYTOIN SODIUM
     Indication: EPILEPSY
     Dosage: UNKNOWN DOSE
  3. TOPIRAMATE. [Concomitant]
     Active Substance: TOPIRAMATE
     Indication: EPILEPSY
     Dosage: UNKNOWN DOSE
  4. PHENOBARBITAL. [Concomitant]
     Active Substance: PHENOBARBITAL
     Indication: EPILEPSY
     Dosage: UNKNOWN DOSE
  5. CLONAZEPAM. [Concomitant]
     Active Substance: CLONAZEPAM
     Indication: EPILEPSY
     Dosage: UNKNOWN DOSE

REACTIONS (1)
  - Drug ineffective [Unknown]
